FAERS Safety Report 6419194-1 (Version None)
Quarter: 2009Q4

REPORT INFORMATION
  Report Type: 
  Country: None (occurrence: None)
  Receive Date: 20091029
  Receipt Date: 20091022
  Transmission Date: 20100525
  Serious: Yes (Other)
  Sender: FDA-Public Use
  Company Number: US-TYCO HEALTHCARE/MALLINCKRODT-T200901928

PATIENT
  Age: 39 Year
  Sex: Female

DRUGS (3)
  1. SODIUM IODIDE I 131 [Suspect]
     Indication: LYMPHADENOPATHY
     Dosage: UNK
     Dates: start: 20080501, end: 20080501
  2. SODIUM IODIDE I 131 [Suspect]
     Indication: THYROID CANCER
  3. LEVOTHYROXINE SODIUM [Concomitant]
     Indication: BLOOD THYROID STIMULATING HORMONE INCREASED

REACTIONS (1)
  - PSYCHOTIC DISORDER [None]
